FAERS Safety Report 16364030 (Version 3)
Quarter: 2019Q3

REPORT INFORMATION
  Report Type: Spontaneous
  Country: AT (occurrence: AT)
  Receive Date: 20190528
  Receipt Date: 20190805
  Transmission Date: 20191004
  Serious: Yes (Other)
  Sender: FDA-Public Use
  Company Number: AT-SA-2019SA139838

PATIENT
  Age: 79 Year
  Sex: Female

DRUGS (14)
  1. BEVACIZUMAB. [Suspect]
     Active Substance: BEVACIZUMAB
     Indication: METASTASIS
  2. TRIFLURIDINE. [Concomitant]
     Active Substance: TRIFLURIDINE
     Dosage: UNK
  3. OXALIPLATIN. [Suspect]
     Active Substance: OXALIPLATIN
     Indication: METASTASIS
     Dosage: UNK
     Dates: start: 201711, end: 201801
  4. AFLIBERCEPT [Suspect]
     Active Substance: AFLIBERCEPT
     Indication: METASTASIS
     Dosage: UNK
     Dates: start: 201801
  5. FLUOROURACIL. [Suspect]
     Active Substance: FLUOROURACIL
     Indication: ADENOCARCINOMA OF COLON
  6. FLUOROURACIL. [Suspect]
     Active Substance: FLUOROURACIL
     Indication: METASTASIS
     Dates: start: 201711
  7. OXALIPLATIN. [Suspect]
     Active Substance: OXALIPLATIN
     Indication: ADENOCARCINOMA OF COLON
  8. BEVACIZUMAB. [Suspect]
     Active Substance: BEVACIZUMAB
     Indication: ADENOCARCINOMA OF COLON
     Dosage: UNK UNK, UNK
     Dates: start: 201711, end: 201801
  9. CAPECITABINE. [Suspect]
     Active Substance: CAPECITABINE
     Indication: ADENOCARCINOMA OF COLON
     Dosage: DOSE REDUCED AND SUBSEQUENTLY WITHDRAWN
     Dates: start: 201208, end: 2012
  10. LEUCOVORIN [FOLINIC ACID] [Suspect]
     Active Substance: LEUCOVORIN
     Indication: METASTASIS
     Dates: start: 201711, end: 201801
  11. IRINOTECAN HYDROCHLORIDE. [Suspect]
     Active Substance: IRINOTECAN HYDROCHLORIDE
     Indication: METASTASIS
     Dosage: UNK
     Dates: start: 201801
  12. LEUCOVORIN [FOLINIC ACID] [Suspect]
     Active Substance: LEUCOVORIN
     Indication: ADENOCARCINOMA OF COLON
  13. TIPIRACIL [Concomitant]
     Active Substance: TIPIRACIL
  14. 5-FU [FLUOROURACIL] [Concomitant]
     Active Substance: FLUOROURACIL
     Dosage: UNK
     Route: 042
     Dates: start: 201801

REACTIONS (7)
  - Neutropenia [Recovered/Resolved]
  - Transient ischaemic attack [Recovered/Resolved]
  - Pneumonia [Unknown]
  - Disease recurrence [Unknown]
  - Clostridium difficile infection [Recovered/Resolved]
  - Metastases to liver [Unknown]
  - Diarrhoea [Recovered/Resolved]

NARRATIVE: CASE EVENT DATE: 2012
